FAERS Safety Report 5852129-9 (Version None)
Quarter: 2008Q3

REPORT INFORMATION
  Report Type: 
  Country: None (occurrence: None)
  Receive Date: 20080819
  Receipt Date: 20080819
  Transmission Date: 20090109
  Serious: Yes (Hospitalization)
  Sender: FDA-Public Use
  Company Number: None

PATIENT
  Age: 65 Year
  Sex: Female
  Weight: 65 kg

DRUGS (9)
  1. PHENYTOIN [Suspect]
     Indication: CONVULSION
     Dosage: 100MG BID PO
     Route: 048
     Dates: start: 20080222, end: 20080327
  2. KEPPRA [Concomitant]
  3. HYDROXYZINE [Concomitant]
  4. LASIX [Concomitant]
  5. BENADRYL [Concomitant]
  6. ASPIRIN [Concomitant]
  7. LOVASTATIN [Concomitant]
  8. REGLAN [Concomitant]
  9. ZEMPLAR [Concomitant]

REACTIONS (5)
  - EOSINOPHILIA [None]
  - ILL-DEFINED DISORDER [None]
  - NEPHRITIS INTERSTITIAL [None]
  - RASH [None]
  - RENAL FAILURE ACUTE [None]
